FAERS Safety Report 7918964-8 (Version None)
Quarter: 2011Q4

REPORT INFORMATION
  Report Type: 
  Country: None (occurrence: None)
  Receive Date: 20111116
  Receipt Date: 20111107
  Transmission Date: 20120403
  Serious: Yes (Other)
  Sender: FDA-Public Use
  Company Number: CA-ASTRAZENECA-2011SE67118

PATIENT

DRUGS (1)
  1. CRESTOR [Suspect]
     Route: 048

REACTIONS (12)
  - ANGINA PECTORIS [None]
  - BRAIN INJURY [None]
  - RHABDOMYOLYSIS [None]
  - AREFLEXIA [None]
  - HAEMORRHAGE [None]
  - PALPITATIONS [None]
  - CHRONIC FATIGUE SYNDROME [None]
  - IRRITABLE BOWEL SYNDROME [None]
  - POLYNEUROPATHY [None]
  - CARDIAC FAILURE ACUTE [None]
  - FEELING ABNORMAL [None]
  - MUSCULOSKELETAL PAIN [None]
